FAERS Safety Report 11142252 (Version 2)
Quarter: 2015Q3

REPORT INFORMATION
  Report Type: Report from Study
  Country: PL (occurrence: PL)
  Receive Date: 20150527
  Receipt Date: 20150710
  Transmission Date: 20151125
  Serious: Yes (Hospitalization)
  Sender: FDA-Public Use
  Company Number: PL-TAKEDA-2015TUS006576

PATIENT
  Age: 24 Year
  Sex: Male
  Weight: 74 kg

DRUGS (3)
  1. VEDOLIZUMAB [Suspect]
     Active Substance: VEDOLIZUMAB
     Indication: CROHN^S DISEASE
     Dosage: 300 MG, Q4WEEKS
     Route: 042
     Dates: start: 20110321
  2. MESALAZIN [Concomitant]
     Active Substance: MESALAMINE
     Dosage: 500 MG, 2 X 2
     Route: 048
     Dates: start: 20090522
  3. OMEPRASOLE [Concomitant]
     Active Substance: OMEPRAZOLE
     Dosage: 20 MG, PERIODICALLY
     Route: 048
     Dates: start: 20111008

REACTIONS (1)
  - Lymphocyte count decreased [Recovering/Resolving]

NARRATIVE: CASE EVENT DATE: 20150514
